FAERS Safety Report 5667160-6 (Version None)
Quarter: 2008Q1

REPORT INFORMATION
  Report Type: 
  Country: None (occurrence: None)
  Receive Date: 20080315
  Receipt Date: 20080110
  Transmission Date: 20080703
  Serious: No
  Sender: FDA-Public Use
  Company Number: US-ABBOTT-08P-163-0433508-00

PATIENT
  Sex: Female
  Weight: 127.12 kg

DRUGS (4)
  1. HUMIRA [Suspect]
     Indication: ANKYLOSING SPONDYLITIS
     Dosage: FROM JUN 2007 THRU NOV 2007 THE PATIENT TOOK ONLY 5 DOSES BECAUSE OF THE INFECTION.
     Route: 058
     Dates: start: 20070401
  2. HUMIRA [Suspect]
     Route: 058
  3. INDOMETHACIN [Concomitant]
     Indication: PAIN
     Dosage: DID NOT WORK
     Route: 048
  4. VICODIN [Concomitant]
     Indication: PAIN
     Route: 048

REACTIONS (3)
  - BRONCHITIS [None]
  - SINUSITIS [None]
  - UPPER RESPIRATORY TRACT INFECTION [None]
